FAERS Safety Report 11030770 (Version 1)
Quarter: 2015Q2

REPORT INFORMATION
  Report Type: Spontaneous
  Country: US (occurrence: None)
  Receive Date: 20150414
  Receipt Date: 20150414
  Transmission Date: 20150821
  Serious: Yes (Other)
  Sender: FDA-Public Use
  Company Number: None

PATIENT
  Age: 50 Year
  Sex: Female

DRUGS (1)
  1. HUMIRA [Suspect]
     Active Substance: ADALIMUMAB
     Indication: RHEUMATOID ARTHRITIS
     Dosage: FREQUENCY: Q O WEEK, DOSE FORM: INJECTABLE, ROUTE:  SUBCUTANEOUS 057
     Route: 058
     Dates: start: 20150405

REACTIONS (3)
  - Oedema peripheral [None]
  - Pain [None]
  - Abasia [None]

NARRATIVE: CASE EVENT DATE: 20150405
